FAERS Safety Report 9097193 (Version 1)
Quarter: 2013Q1

REPORT INFORMATION
  Report Type: Spontaneous
  Country: NO (occurrence: NO)
  Receive Date: 20130212
  Receipt Date: 20130212
  Transmission Date: 20140127
  Serious: Yes (Hospitalization)
  Sender: FDA-Public Use
  Company Number: PHHY2013NO012109

PATIENT
  Sex: Female

DRUGS (4)
  1. TEGRETOL [Suspect]
     Indication: PARAESTHESIA
     Dosage: UNK
  2. TEGRETOL [Suspect]
     Indication: FACIAL PAIN
  3. NEURONTIN [Suspect]
     Indication: FACIAL PAIN
     Dosage: UNK
  4. NEURONTIN [Suspect]
     Indication: PARAESTHESIA

REACTIONS (1)
  - Communication disorder [Unknown]
